FAERS Safety Report 14405613 (Version 5)
Quarter: 2019Q1

REPORT INFORMATION
  Report Type: Spontaneous
  Country: US (occurrence: US)
  Receive Date: 20180118
  Receipt Date: 20190328
  Transmission Date: 20190417
  Serious: No
  Sender: FDA-Public Use
  Company Number: US-PFIZER INC-2018023098

PATIENT
  Age: 62 Year
  Sex: Female

DRUGS (1)
  1. VENLAFAXINE HCL [Suspect]
     Active Substance: VENLAFAXINE HYDROCHLORIDE
     Indication: DEPRESSION
     Dosage: UNK
     Route: 048

REACTIONS (5)
  - Insomnia [Unknown]
  - Fatigue [Unknown]
  - Tearfulness [Unknown]
  - Apathy [Unknown]
  - Drug ineffective [Recovered/Resolved]
